FAERS Safety Report 5716934-1 (Version None)
Quarter: 2008Q2

REPORT INFORMATION
  Report Type: 
  Country: None (occurrence: None)
  Receive Date: 20080422
  Receipt Date: 20080410
  Transmission Date: 20081010
  Serious: Yes (Death, Hospitalization)
  Sender: FDA-Public Use
  Company Number: 2008000813

PATIENT
  Age: 75 Year
  Sex: Female

DRUGS (3)
  1. ERLOTINIB (ERLOTINIB HCI) (TABLET) (ERLOTINI HCI) [Suspect]
     Indication: NON-SMALL CELL LUNG CANCER
     Dosage: 150 MG, QD, ORAL
     Route: 048
     Dates: start: 20051029, end: 20051129
  2. CEFTIZOXIME (CEFTIZOXIME) [Concomitant]
  3. CLINDAMYCIN HCL [Concomitant]

REACTIONS (5)
  - HAEMOGLOBIN DECREASED [None]
  - INTERSTITIAL LUNG DISEASE [None]
  - NEUTROPHIL COUNT INCREASED [None]
  - PNEUMONIA BACTERIAL [None]
  - RESPIRATORY FAILURE [None]
